FAERS Safety Report 21327626 (Version 8)
Quarter: 2023Q2

REPORT INFORMATION
  Report Type: Report from Study
  Country: US (occurrence: US)
  Receive Date: 20220913
  Receipt Date: 20230623
  Transmission Date: 20230721
  Serious: Yes (Other)
  Sender: FDA-Public Use
  Company Number: US-NOVARTISTESTPH-NVSC2022US206237

PATIENT
  Sex: Female

DRUGS (1)
  1. COSENTYX [Suspect]
     Active Substance: SECUKINUMAB
     Indication: Psoriatic arthropathy
     Dosage: UNK
     Route: 058

REACTIONS (7)
  - Psoriatic arthropathy [Unknown]
  - COVID-19 [Unknown]
  - Illness [Unknown]
  - Injection site pain [Unknown]
  - Sinusitis [Unknown]
  - Dry skin [Unknown]
  - Therapeutic product effect incomplete [Unknown]
